FAERS Safety Report 8115659-5 (Version None)
Quarter: 2012Q1

REPORT INFORMATION
  Report Type: 
  Country: None (occurrence: None)
  Receive Date: 20120206
  Receipt Date: 20120201
  Transmission Date: 20120608
  Serious: Yes (Hospitalization)
  Sender: FDA-Public Use
  Company Number: US-BAYER-2012-010785

PATIENT
  Age: 94 Year
  Sex: Female

DRUGS (4)
  1. ALEVE (CAPLET) [Suspect]
     Indication: ANALGESIC THERAPY
     Dosage: 1 DF, ONCE
     Route: 048
     Dates: start: 20110414, end: 20110414
  2. XANAX [Concomitant]
  3. XANAX [Concomitant]
  4. ATIVAN [Concomitant]

REACTIONS (3)
  - RECTAL HAEMORRHAGE [None]
  - ASTHENIA [None]
  - WEIGHT DECREASED [None]
